FAERS Safety Report 24822729 (Version 2)
Quarter: 2025Q1

REPORT INFORMATION
  Report Type: Spontaneous
  Country: AR (occurrence: AR)
  Receive Date: 20250109
  Receipt Date: 20250217
  Transmission Date: 20250409
  Serious: Yes (Death)
  Sender: BOEHRINGER INGELHEIM
  Company Number: AR-BoehringerIngelheim-2025-BI-000918

PATIENT
  Age: 49 Year
  Sex: Male
  Weight: 135 kg

DRUGS (3)
  1. PRAXBIND [Suspect]
     Active Substance: IDARUCIZUMAB
     Indication: Procoagulant therapy
  2. PRAXBIND [Suspect]
     Active Substance: IDARUCIZUMAB
     Indication: Mediastinal haemorrhage
  3. PRAXBIND [Suspect]
     Active Substance: IDARUCIZUMAB
     Indication: Venous perforation

REACTIONS (1)
  - Cardiac tamponade [Fatal]

NARRATIVE: CASE EVENT DATE: 20230302
